FAERS Safety Report 8261590-4 (Version None)
Quarter: 2012Q2

REPORT INFORMATION
  Report Type: 
  Country: None (occurrence: None)
  Receive Date: 20120405
  Receipt Date: 20120328
  Transmission Date: 20120825
  Serious: Yes (Hospitalization)
  Sender: FDA-Public Use
  Company Number: US-BAYER-2011-052339

PATIENT
  Age: 21 Year
  Sex: Female
  Weight: 65.76 kg

DRUGS (2)
  1. HYDROCODONE BITARTRATE AND ACETAMINOPHEN [Concomitant]
     Dosage: UNK UNK, PRN
     Route: 048
     Dates: start: 20080414
  2. YAZ [Suspect]
     Indication: CONTRACEPTION
     Dosage: UNK
     Dates: start: 20070201, end: 20090801

REACTIONS (12)
  - SCAR [None]
  - CHOLECYSTITIS CHRONIC [None]
  - ABDOMINAL DISTENSION [None]
  - DEPRESSION [None]
  - DIARRHOEA [None]
  - WEIGHT ABNORMAL [None]
  - CHOLELITHIASIS [None]
  - PAIN [None]
  - FLATULENCE [None]
  - DYSPEPSIA [None]
  - CONSTIPATION [None]
  - ANXIETY [None]
